FAERS Safety Report 23443244 (Version 2)
Quarter: 2024Q1

REPORT INFORMATION
  Report Type: Report from Study
  Country: FR (occurrence: None)
  Receive Date: 20240125
  Receipt Date: 20240201
  Transmission Date: 20240410
  Serious: Yes (Hospitalization, Other)
  Sender: FDA-Public Use
  Company Number: 2023A122345

PATIENT
  Age: 26332 Day
  Sex: Male
  Weight: 67 kg

DRUGS (22)
  1. IMFINZI [Suspect]
     Active Substance: DURVALUMAB
     Indication: Biliary neoplasm
     Route: 042
     Dates: start: 20230309
  2. IMFINZI [Suspect]
     Active Substance: DURVALUMAB
     Indication: Cholangiocarcinoma
     Route: 042
     Dates: start: 20230309
  3. IMFINZI [Suspect]
     Active Substance: DURVALUMAB
     Indication: Biliary neoplasm
     Route: 042
     Dates: start: 20230329
  4. IMFINZI [Suspect]
     Active Substance: DURVALUMAB
     Indication: Cholangiocarcinoma
     Route: 042
     Dates: start: 20230329
  5. IMFINZI [Suspect]
     Active Substance: DURVALUMAB
     Indication: Biliary neoplasm
     Route: 042
     Dates: start: 20230419
  6. IMFINZI [Suspect]
     Active Substance: DURVALUMAB
     Indication: Cholangiocarcinoma
     Route: 042
     Dates: start: 20230419
  7. IMFINZI [Suspect]
     Active Substance: DURVALUMAB
     Indication: Biliary neoplasm
     Route: 042
     Dates: start: 20230607
  8. IMFINZI [Suspect]
     Active Substance: DURVALUMAB
     Indication: Cholangiocarcinoma
     Route: 042
     Dates: start: 20230607
  9. IMFINZI [Suspect]
     Active Substance: DURVALUMAB
     Indication: Biliary neoplasm
     Route: 042
     Dates: start: 20230905
  10. IMFINZI [Suspect]
     Active Substance: DURVALUMAB
     Indication: Cholangiocarcinoma
     Route: 042
     Dates: start: 20230905
  11. IMFINZI [Suspect]
     Active Substance: DURVALUMAB
     Indication: Biliary neoplasm
     Route: 042
     Dates: start: 20231011
  12. IMFINZI [Suspect]
     Active Substance: DURVALUMAB
     Indication: Cholangiocarcinoma
     Route: 042
     Dates: start: 20231011
  13. CISPLATIN/GEMCITABINE [Concomitant]
     Indication: Biliary neoplasm
     Dates: start: 20230309
  14. CISPLATIN/GEMCITABINE [Concomitant]
     Indication: Cholangiocarcinoma
     Dates: start: 20230309
  15. CISPLATIN/GEMCITABINE [Concomitant]
     Indication: Biliary neoplasm
     Dates: start: 20230329
  16. CISPLATIN/GEMCITABINE [Concomitant]
     Indication: Cholangiocarcinoma
     Dates: start: 20230329
  17. CISPLATIN/GEMCITABINE [Concomitant]
     Indication: Biliary neoplasm
     Dates: start: 20230419
  18. CISPLATIN/GEMCITABINE [Concomitant]
     Indication: Cholangiocarcinoma
     Dates: start: 20230419
  19. CISPLATIN/GEMCITABINE [Concomitant]
     Indication: Biliary neoplasm
     Dates: start: 20230607
  20. CISPLATIN/GEMCITABINE [Concomitant]
     Indication: Cholangiocarcinoma
     Dates: start: 20230607
  21. CISPLATIN/GEMCITABINE [Concomitant]
     Indication: Biliary neoplasm
     Dates: start: 20230905
  22. CISPLATIN/GEMCITABINE [Concomitant]
     Indication: Cholangiocarcinoma
     Dates: start: 20230905

REACTIONS (4)
  - Enterobacter bacteraemia [Recovered/Resolved]
  - Diabetic metabolic decompensation [Recovered/Resolved]
  - Myocarditis [Unknown]
  - Immune-mediated myocarditis [Recovered/Resolved]

NARRATIVE: CASE EVENT DATE: 20231107
